FAERS Safety Report 17261957 (Version 1)
Quarter: 2020Q1

REPORT INFORMATION
  Report Type: Spontaneous
  Country: AR (occurrence: AR)
  Receive Date: 20200113
  Receipt Date: 20200113
  Transmission Date: 20200409
  Serious: Yes (Other)
  Sender: FDA-Public Use
  Company Number: AR-PFIZER INC-2020010692

PATIENT
  Age: 64 Year
  Sex: Male

DRUGS (2)
  1. SUTENT [Suspect]
     Active Substance: SUNITINIB MALATE
     Dosage: 50 MG, CYCLIC (2/1 SCHEME)
  2. SUTENT [Suspect]
     Active Substance: SUNITINIB MALATE
     Indication: METASTATIC RENAL CELL CARCINOMA
     Dosage: UNK UNK, DAILY
     Dates: start: 20190729

REACTIONS (7)
  - Gait disturbance [Unknown]
  - Pyrexia [Unknown]
  - Sensitive skin [Unknown]
  - Burn oral cavity [Unknown]
  - Malaise [Unknown]
  - Oral pain [Unknown]
  - Hypertension [Unknown]
